FAERS Safety Report 6388418-1 (Version None)
Quarter: 2009Q4

REPORT INFORMATION
  Report Type: 
  Country: None (occurrence: None)
  Receive Date: 20091005
  Receipt Date: 20090929
  Transmission Date: 20100525
  Serious: Yes (Other)
  Sender: FDA-Public Use
  Company Number: US-BAYER-200931457NA

PATIENT
  Sex: Male

DRUGS (7)
  1. AVELOX [Suspect]
     Indication: DRUG USE FOR UNKNOWN INDICATION
     Dosage: TOTAL DAILY DOSE: 400 MG  UNIT DOSE: 400 MG
     Dates: start: 20090807, end: 20090807
  2. HYZAAR [Concomitant]
     Indication: HYPERTENSION
  3. NEXIUM [Concomitant]
     Indication: GASTROOESOPHAGEAL REFLUX DISEASE
  4. LIPITOR [Concomitant]
     Indication: HYPERCHOLESTEROLAEMIA
  5. VITAMINS [Concomitant]
  6. FISH OIL [Concomitant]
  7. ASPIRIN [Concomitant]

REACTIONS (2)
  - ANAPHYLACTIC REACTION [None]
  - THROAT TIGHTNESS [None]
